FAERS Safety Report 11434406 (Version 2)
Quarter: 2015Q4

REPORT INFORMATION
  Report Type: Report from Study
  Country: US (occurrence: US)
  Receive Date: 20150831
  Receipt Date: 20151013
  Transmission Date: 20160304
  Serious: Yes (Hospitalization)
  Sender: FDA-Public Use
  Company Number: PHHO2015US013470

PATIENT
  Age: 38 Year
  Sex: Male
  Weight: 70.3 kg

DRUGS (2)
  1. VANCOMYCIN HYDROCHLORIDE. [Suspect]
     Active Substance: VANCOMYCIN HYDROCHLORIDE
     Indication: PRODUCT USED FOR UNKNOWN INDICATION
     Route: 065
  2. NO TREATMENT RECEIVED [Suspect]
     Active Substance: UNSPECIFIED INGREDIENT
     Indication: SQUAMOUS CELL CARCINOMA OF HEAD AND NECK
     Dosage: NO TREATMENT
     Route: 065

REACTIONS (4)
  - Hypercalcaemia [Recovering/Resolving]
  - Sepsis [Not Recovered/Not Resolved]
  - Hypertension [Not Recovered/Not Resolved]
  - Mental status changes [Recovering/Resolving]

NARRATIVE: CASE EVENT DATE: 20150810
